FAERS Safety Report 5499142-1 (Version None)
Quarter: 2007Q4

REPORT INFORMATION
  Report Type: 
  Country: None (occurrence: None)
  Receive Date: 20071026
  Receipt Date: 20071012
  Transmission Date: 20080405
  Serious: Yes (Hospitalization)
  Sender: FDA-Public Use
  Company Number: FR-ASTRAZENECA-2007SE05719

PATIENT
  Age: 29766 Day
  Sex: Female

DRUGS (10)
  1. KENZEN [Suspect]
     Indication: HYPERTENSION
     Route: 048
     Dates: end: 20070530
  2. MONO-TILDIEM [Suspect]
     Indication: HYPERTENSION
     Route: 048
     Dates: end: 20070530
  3. LANTUS [Concomitant]
     Indication: TYPE 1 DIABETES MELLITUS
     Route: 065
  4. DEPAKENE [Concomitant]
     Indication: EPILEPSY
     Route: 048
  5. NITRODERM [Concomitant]
     Indication: ANGINA PECTORIS
     Route: 065
  6. KARDEGIC [Concomitant]
     Indication: DRUG USE FOR UNKNOWN INDICATION
     Route: 048
  7. CRESTOR [Concomitant]
     Indication: HYPERCHOLESTEROLAEMIA
     Route: 048
  8. HEXAQUINE [Concomitant]
     Indication: MUSCLE SPASMS
     Route: 065
  9. ZOLPIDEM TARTRATE [Concomitant]
     Indication: DRUG USE FOR UNKNOWN INDICATION
     Route: 048
  10. DOLIPRANE [Concomitant]
     Indication: DRUG USE FOR UNKNOWN INDICATION
     Route: 065

REACTIONS (2)
  - BRADYCARDIA [None]
  - RENAL FAILURE [None]
